FAERS Safety Report 8598449-9 (Version None)
Quarter: 2012Q3

REPORT INFORMATION
  Report Type: 
  Country: None (occurrence: None)
  Receive Date: 20120816
  Receipt Date: 20120810
  Transmission Date: 20120928
  Serious: Yes (Death)
  Sender: FDA-Public Use
  Company Number: FR-ROCHE-1000881

PATIENT
  Sex: Female
  Weight: 52 kg

DRUGS (2)
  1. AVASTIN [Suspect]
     Indication: BREAST CANCER
     Dates: start: 20080110, end: 20110301
  2. GEMZAR [Suspect]
     Indication: CHEMOTHERAPY
     Route: 042
     Dates: start: 20101221, end: 20110301

REACTIONS (1)
  - GENERAL PHYSICAL HEALTH DETERIORATION [None]
